FAERS Safety Report 8955445 (Version 1)
Quarter: 2012Q4

REPORT INFORMATION
  Report Type: 
  Country: US (occurrence: US)
  Receive Date: 20121210
  Receipt Date: 20121210
  Transmission Date: 20130627
  Serious: No
  Sender: FDA-Public Use
  Company Number: US-PFIZER INC-2012309958

PATIENT
  Age: 39 Year
  Sex: Female
  Weight: 72.56 kg

DRUGS (12)
  1. LYRICA [Suspect]
     Indication: HERNIATED DISC
     Dosage: 150 mg, 2x/day
     Route: 048
     Dates: start: 201210
  2. LYRICA [Suspect]
     Dosage: 100 mg, 2x/day
     Route: 048
  3. TRAMADOL HCL [Suspect]
     Indication: SLEEP DISORDER
     Dosage: UNK, daily
     Dates: start: 201210
  4. ASTELIN [Suspect]
     Indication: SEASONAL ALLERGY
     Dosage: UNK
     Route: 045
  5. ASTELIN [Suspect]
     Indication: MYCOTIC ALLERGY
  6. ASTELIN [Suspect]
     Indication: PROPHYLAXIS
  7. FLONASE [Suspect]
     Indication: SEASONAL ALLERGY
     Dosage: UNK
     Route: 045
  8. FLONASE [Suspect]
     Indication: MYCOTIC ALLERGY
  9. FLONASE [Suspect]
     Indication: PROPHYLAXIS
  10. ZYRTEC [Suspect]
     Indication: SEASONAL ALLERGY
     Dosage: 10 mg, daily
  11. ZYRTEC [Suspect]
     Indication: MYCOTIC ALLERGY
  12. ZYRTEC [Suspect]
     Indication: PROPHYLAXIS

REACTIONS (3)
  - Skin discolouration [Not Recovered/Not Resolved]
  - Dizziness [Unknown]
  - Sinus disorder [Unknown]
